FAERS Safety Report 8525106-7 (Version None)
Quarter: 2012Q3

REPORT INFORMATION
  Report Type: 
  Country: None (occurrence: None)
  Receive Date: 20120720
  Receipt Date: 20120712
  Transmission Date: 20120928
  Serious: Yes (Other)
  Sender: FDA-Public Use
  Company Number: US-BAYER-2012-072587

PATIENT
  Sex: Male

DRUGS (3)
  1. PLAVIX [Interacting]
     Indication: PRODUCT USED FOR UNKNOWN INDICATION
  2. XARELTO [Interacting]
     Indication: PRODUCT USED FOR UNKNOWN INDICATION
     Dosage: 20 MG, UNK
     Route: 048
  3. ASPIRIN [Suspect]
     Indication: PRODUCT USED FOR UNKNOWN INDICATION

REACTIONS (1)
  - MOUTH HAEMORRHAGE [None]
